FAERS Safety Report 9752983 (Version 1)
Quarter: 2013Q4

REPORT INFORMATION
  Report Type: Spontaneous
  Country: FR (occurrence: FR)
  Receive Date: 20131213
  Receipt Date: 20131213
  Transmission Date: 20140711
  Serious: Yes (Other)
  Sender: FDA-Public Use
  Company Number: FR-JNJFOC-20131200927

PATIENT
  Age: 52 Year
  Sex: Male

DRUGS (7)
  1. XEPLION [Suspect]
     Indication: PRODUCT USED FOR UNKNOWN INDICATION
     Route: 030
     Dates: start: 20130724
  2. XEPLION [Suspect]
     Indication: PRODUCT USED FOR UNKNOWN INDICATION
     Route: 030
     Dates: start: 20130717
  3. PANTOPRAZOLE [Concomitant]
     Route: 065
  4. NOZINAN [Concomitant]
     Route: 065
  5. PARKINANE LP [Concomitant]
     Route: 065
  6. RISPERIDONE [Concomitant]
     Route: 065
     Dates: end: 20130717
  7. SERESTA [Concomitant]
     Route: 065
     Dates: end: 20130717

REACTIONS (1)
  - Pneumonia [Recovered/Resolved]
